FAERS Safety Report 4795132-2 (Version None)
Quarter: 2005Q4

REPORT INFORMATION
  Report Type: 
  Country: None (occurrence: None)
  Receive Date: 20051012
  Receipt Date: 20050919
  Transmission Date: 20060501
  Serious: Yes (Life-Threatening, Hospitalization)
  Sender: FDA-Public Use
  Company Number: ZA-NOVOPROD-247070

PATIENT
  Age: 73 Year
  Sex: Male
  Weight: 82 kg

DRUGS (12)
  1. LIPITOR [Concomitant]
  2. NOVOMIX 30 FLEXPEN [Suspect]
     Indication: INSULIN-REQUIRING TYPE II DIABETES MELLITUS
     Dosage: 24 U, UNK
     Route: 058
     Dates: start: 20050228, end: 20050826
  3. COMBIVENT                               /GFR/ [Concomitant]
     Dates: start: 19960101
  4. DUOVENT [Concomitant]
     Dates: start: 19960101
  5. SEREVENT [Concomitant]
     Dates: start: 19960101
  6. UNIPHLY [Concomitant]
     Dates: start: 19960101
  7. PULMICORT [Concomitant]
  8. TARKA [Concomitant]
     Dates: start: 20020101
  9. ECOTRIN [Concomitant]
     Dates: start: 20020101
  10. CEPHALEXIN [Concomitant]
     Dates: start: 20020101
  11. LASIX [Concomitant]
     Dates: start: 20020101
  12. SLOW-K [Concomitant]
     Dates: start: 20020101

REACTIONS (2)
  - RESPIRATORY FAILURE [None]
  - SUPRAVENTRICULAR TACHYCARDIA [None]
